FAERS Safety Report 21645446 (Version 1)
Quarter: 2022Q4

REPORT INFORMATION
  Report Type: Report from Study
  Country: US (occurrence: US)
  Receive Date: 20221126
  Receipt Date: 20221126
  Transmission Date: 20230113
  Serious: No
  Sender: FDA-Public Use
  Company Number: US-ABBVIE-4169043

PATIENT
  Age: 40 Year
  Sex: Female

DRUGS (4)
  1. HUMIRA [Suspect]
     Active Substance: ADALIMUMAB
     Indication: Hidradenitis
     Dosage: FORM STRENGTH: 40 MG
     Route: 058
  2. MODERNA COVID-19 VACCINE [Concomitant]
     Active Substance: ELASOMERAN
     Indication: COVID-19 immunisation
     Dosage: FIRST DOSE, FREQUENCY ONCE
     Route: 030
     Dates: start: 20210418, end: 20210418
  3. MODERNA COVID-19 VACCINE [Concomitant]
     Active Substance: ELASOMERAN
     Indication: COVID-19 immunisation
     Dosage: SECOND DOSE, FREQUENCY ONCE
     Route: 030
     Dates: start: 20210517, end: 20210517
  4. MODERNA COVID-19 VACCINE [Concomitant]
     Active Substance: ELASOMERAN
     Indication: COVID-19 immunisation
     Dosage: THIRD/ BOOSTER DOSE, FREQUENCY ONCE
     Route: 030
     Dates: start: 20220105, end: 20220105

REACTIONS (2)
  - Urinary tract infection [Unknown]
  - Inflammation [Unknown]

NARRATIVE: CASE EVENT DATE: 20221001
